FAERS Safety Report 12736178 (Version 1)
Quarter: 2016Q3

REPORT INFORMATION
  Report Type: Spontaneous
  Country: US (occurrence: US)
  Receive Date: 20160912
  Receipt Date: 20160912
  Transmission Date: 20161109
  Serious: No
  Sender: FDA-Public Use
  Company Number: PHEH2016US022795

PATIENT
  Sex: Female

DRUGS (1)
  1. PROMACTA [Suspect]
     Active Substance: ELTROMBOPAG OLAMINE
     Indication: PROSTATE CANCER
     Dosage: 25 MG, QD
     Route: 048
     Dates: start: 20151012

REACTIONS (3)
  - Pruritus [Unknown]
  - Paraesthesia [Unknown]
  - Product use issue [Unknown]
